FAERS Safety Report 6122099-7 (Version None)
Quarter: 2009Q1

REPORT INFORMATION
  Report Type: 
  Country: None (occurrence: None)
  Receive Date: 20090316
  Receipt Date: 20090316
  Transmission Date: 20090719
  Serious: Yes (Other)
  Sender: FDA-Public Use
  Company Number: None

PATIENT
  Age: 52 Year
  Sex: Male
  Weight: 81.6475 kg

DRUGS (1)
  1. SUBOXONE [Suspect]
     Indication: DRUG THERAPY
     Dosage: 8MG THREE TIME DAILY SL; 2MG DAILY SL
     Route: 060
     Dates: start: 20090121, end: 20090315

REACTIONS (3)
  - CONFUSIONAL STATE [None]
  - DELIRIUM [None]
  - HEADACHE [None]
